FAERS Safety Report 18649829 (Version 1)
Quarter: 2020Q4

REPORT INFORMATION
  Report Type: Spontaneous
  Country: US (occurrence: US)
  Receive Date: 20201222
  Receipt Date: 20201222
  Transmission Date: 20210114
  Serious: Yes (Other)
  Sender: FDA-Public Use
  Company Number: US-SA-2020SA357695

PATIENT

DRUGS (3)
  1. PREDNISONE. [Suspect]
     Active Substance: PREDNISONE
  2. METHOTREXATE. [Suspect]
     Active Substance: METHOTREXATE
     Dosage: UNK
     Dates: end: 202010
  3. ARAVA [Suspect]
     Active Substance: LEFLUNOMIDE
     Dosage: UNK

REACTIONS (9)
  - Sinusitis [Unknown]
  - Pain [Unknown]
  - Candida infection [Unknown]
  - Nausea [Unknown]
  - Pyrexia [Unknown]
  - Ulcerative keratitis [Unknown]
  - Arthritis [Unknown]
  - Eye inflammation [Unknown]
  - COVID-19 [Unknown]

NARRATIVE: CASE EVENT DATE: 20201026
